FAERS Safety Report 15281061 (Version 1)
Quarter: 2018Q3

REPORT INFORMATION
  Report Type: Spontaneous
  Country: US (occurrence: US)
  Receive Date: 20180731
  Receipt Date: 20180731
  Transmission Date: 20181010
  Serious: Yes (Life-Threatening, Hospitalization, Disabling, Other)
  Sender: FDA-Public Use
  Company Number: None

PATIENT
  Age: 54 Year
  Sex: Female
  Weight: 81 kg

DRUGS (14)
  1. GABAPENTIN. [Suspect]
     Active Substance: GABAPENTIN
     Indication: PAIN
     Dates: start: 20121216, end: 20180714
  2. AMPLIFIER [Concomitant]
  3. VITAMIN D [Concomitant]
     Active Substance: CHOLECALCIFEROL
  4. TRAZODONE [Concomitant]
     Active Substance: TRAZODONE HYDROCHLORIDE
  5. CARVEDILOL. [Concomitant]
     Active Substance: CARVEDILOL
  6. MOVANICK [Concomitant]
  7. OXYCODONE [Concomitant]
     Active Substance: OXYCODONE
  8. MAGNESIUM [Concomitant]
     Active Substance: MAGNESIUM
  9. SODIUM [Concomitant]
     Active Substance: SODIUM
  10. DHEA [Concomitant]
     Active Substance: PRASTERONE
  11. MEDTRONIC PAIN PUMP [Concomitant]
     Active Substance: DEVICE
  12. IRON [Concomitant]
     Active Substance: IRON
  13. HYDROCORTISONE. [Concomitant]
     Active Substance: HYDROCORTISONE
  14. CALCIUM [Concomitant]
     Active Substance: CALCIUM

REACTIONS (33)
  - Meningitis bacterial [None]
  - Dyskinesia [None]
  - Mental impairment [None]
  - Hypopnoea [None]
  - Gallbladder disorder [None]
  - Adrenal insufficiency [None]
  - Seizure [None]
  - Drug dependence [None]
  - Diverticulitis [None]
  - Nausea [None]
  - Anger [None]
  - Fall [None]
  - Memory impairment [None]
  - Drug withdrawal syndrome [None]
  - Irritable bowel syndrome [None]
  - Drug dose omission [None]
  - Colitis [None]
  - Dizziness [None]
  - Dementia [None]
  - Hypertension [None]
  - Abdominal pain [None]
  - Pelvic pain [None]
  - Feeling abnormal [None]
  - Depression [None]
  - Amnesia [None]
  - Neuralgia [None]
  - Electrolyte imbalance [None]
  - Fatigue [None]
  - Upper respiratory tract infection [None]
  - Dyspnoea [None]
  - Nephrolithiasis [None]
  - Weight increased [None]
  - Hunger [None]

NARRATIVE: CASE EVENT DATE: 20180101
